FAERS Safety Report 15992086 (Version 2)
Quarter: 2019Q1

REPORT INFORMATION
  Report Type: Spontaneous
  Country: US (occurrence: US)
  Receive Date: 20190221
  Receipt Date: 20190329
  Transmission Date: 20190418
  Serious: Yes (Other)
  Sender: FDA-Public Use
  Company Number: US-UPSHER-SMITH LABORATORIES, LLC-2019USL00104

PATIENT
  Age: 81 Year
  Sex: Female
  Weight: 68.03 kg

DRUGS (6)
  1. DILANTIN [Suspect]
     Active Substance: PHENYTOIN
     Indication: SEIZURE
     Dosage: 300 MG, 1X/DAY NIGHTLY
     Route: 048
  2. SERTRALINE [Concomitant]
     Active Substance: SERTRALINE HYDROCHLORIDE
     Dosage: 100 MG, 1X/DAY
  3. EXEMESTANE. [Suspect]
     Active Substance: EXEMESTANE
     Indication: HORMONE SUPPRESSION THERAPY
     Dosage: 1 TABLETS, 1X/DAY
     Route: 048
     Dates: start: 201807
  4. DILANTIN [Suspect]
     Active Substance: PHENYTOIN
     Dosage: 400 MG, 1X/DAY NIGHTLY
     Route: 048
  5. AMLODIPINE BESYLATE. [Concomitant]
     Active Substance: AMLODIPINE BESYLATE
     Dosage: 10 MG, 1X/DAY
  6. LOSARTAN. [Concomitant]
     Active Substance: LOSARTAN
     Dosage: 25 MG, 1X/DAY

REACTIONS (9)
  - Sedation [Unknown]
  - Postictal state [Unknown]
  - Generalised tonic-clonic seizure [Unknown]
  - Drug interaction [Recovered/Resolved]
  - Sinus tachycardia [Unknown]
  - Pain [Unknown]
  - Bundle branch block left [Unknown]
  - Anticonvulsant drug level below therapeutic [Unknown]
  - Electrocardiogram QRS complex prolonged [Unknown]

NARRATIVE: CASE EVENT DATE: 201812
